FAERS Safety Report 16451214 (Version 1)
Quarter: 2019Q3

REPORT INFORMATION
  Report Type: Spontaneous
  Country: TH (occurrence: TH)
  Receive Date: 20190618
  Receipt Date: 20190618
  Transmission Date: 20191004
  Serious: No
  Sender: FDA-Public Use
  Company Number: None

PATIENT
  Age: 20 Year
  Sex: Male
  Weight: 80 kg

DRUGS (2)
  1. SINGULAIR [Suspect]
     Active Substance: MONTELUKAST SODIUM
     Indication: MULTIPLE ALLERGIES
  2. SINGULAIR [Suspect]
     Active Substance: MONTELUKAST SODIUM
     Indication: ASTHMA

REACTIONS (8)
  - Anxiety [None]
  - Hepatic function abnormal [None]
  - Product use complaint [None]
  - Insomnia [None]
  - Apathy [None]
  - Major depression [None]
  - Palpitations [None]
  - Eosinophil count increased [None]

NARRATIVE: CASE EVENT DATE: 20170915
